FAERS Safety Report 10787411 (Version 3)
Quarter: 2015Q3

REPORT INFORMATION
  Report Type: Report from Study
  Country: NZ (occurrence: NZ)
  Receive Date: 20150212
  Receipt Date: 20150727
  Transmission Date: 20151125
  Serious: Yes (Death, Other)
  Sender: FDA-Public Use
  Company Number: PHHY2015NZ016200

PATIENT
  Age: 61 Year
  Sex: Female
  Weight: 130 kg

DRUGS (12)
  1. CLOZARIL [Suspect]
     Active Substance: CLOZAPINE
     Indication: SCHIZOPHRENIA
     Dosage: UNK
     Route: 048
     Dates: start: 19950328
  2. ARIPIPRAZOLE. [Concomitant]
     Active Substance: ARIPIPRAZOLE
     Indication: THINKING ABNORMAL
     Dosage: 10 MG, 1 TAB EACH MORNING
     Route: 065
     Dates: start: 20141111
  3. SALBUTAMOL [Concomitant]
     Active Substance: ALBUTEROL
     Indication: WHEEZING
     Dosage: 2 DF, PRN
     Route: 065
     Dates: start: 20110602
  4. CLONAZEPAM. [Concomitant]
     Active Substance: CLONAZEPAM
     Indication: SEDATIVE THERAPY
     Dosage: 0.5 MG, BID
     Route: 065
     Dates: start: 20080416
  5. OXYBUTYNIN [Concomitant]
     Active Substance: OXYBUTYNIN
     Indication: BLADDER IRRITATION
     Dosage: 5 MG, 1 TAB AT NIGHT
     Route: 065
     Dates: start: 20141030
  6. PAROXETINE [Concomitant]
     Active Substance: PAROXETINE\PAROXETINE HYDROCHLORIDE
     Indication: DEPRESSION
     Dosage: 20 MG, 1 TAB EACH MORNING
     Route: 065
     Dates: start: 20080416
  7. CLOZARIL [Suspect]
     Active Substance: CLOZAPINE
     Dosage: 175 MG, QHS (IN NIGHT)
     Route: 048
  8. METFORMIN [Concomitant]
     Active Substance: METFORMIN HYDROCHLORIDE
     Indication: DIABETES MELLITUS
     Dosage: 850 MG, BID
     Route: 065
     Dates: start: 20140626
  9. CHOLECALCIFEROL [Concomitant]
     Active Substance: CHOLECALCIFEROL
     Indication: HYPOVITAMINOSIS
     Dosage: 50000 IU, 1 TAB EACH MONTH
     Route: 065
     Dates: start: 20101201
  10. FLIXOTIDE [Concomitant]
     Active Substance: FLUTICASONE PROPIONATE
     Indication: PRODUCT USED FOR UNKNOWN INDICATION
     Dosage: UNK OT, BID
     Route: 065
  11. CLOZARIL [Suspect]
     Active Substance: CLOZAPINE
     Indication: THINKING ABNORMAL
     Dosage: 150 MG, (50X 3 TABS) AT NIGHT
     Route: 048
     Dates: start: 20141120
  12. SIMVASTATIN. [Concomitant]
     Active Substance: SIMVASTATIN
     Indication: BLOOD CHOLESTEROL INCREASED
     Dosage: 20 MG, (1 TAB AT NIGHT)
     Route: 065
     Dates: start: 20080416

REACTIONS (15)
  - Circulatory collapse [Unknown]
  - Psychotic disorder [Unknown]
  - Agitation [Unknown]
  - Hypersexuality [Unknown]
  - Anosognosia [Unknown]
  - Myocardial infarction [Fatal]
  - Enuresis [Unknown]
  - Limb discomfort [Unknown]
  - Malaise [Unknown]
  - Weight increased [Unknown]
  - Off label use [Unknown]
  - Mental impairment [Unknown]
  - Diabetic retinopathy [Unknown]
  - Impulse-control disorder [Unknown]
  - Loss of consciousness [Unknown]

NARRATIVE: CASE EVENT DATE: 20150118
